FAERS Safety Report 4642201-3 (Version None)
Quarter: 2005Q2

REPORT INFORMATION
  Report Type: 
  Country: None (occurrence: None)
  Receive Date: 20050421
  Receipt Date: 20050421
  Transmission Date: 20051028
  Serious: Yes (Other)
  Sender: FDA-Public Use
  Company Number: None

PATIENT
  Age: 65 Year
  Sex: Female
  Weight: 77.1115 kg

DRUGS (1)
  1. LAMISIL [Suspect]
     Indication: ONYCHOMYCOSIS
     Dosage: 1 PER DAY
     Dates: start: 20050221, end: 20050306

REACTIONS (7)
  - ANXIETY [None]
  - DRUG HYPERSENSITIVITY [None]
  - NAUSEA [None]
  - OEDEMA PERIPHERAL [None]
  - RASH GENERALISED [None]
  - SKIN EXFOLIATION [None]
  - SWELLING FACE [None]
